FAERS Safety Report 20036638 (Version 1)
Quarter: 2021Q4

REPORT INFORMATION
  Report Type: Spontaneous
  Country: FR (occurrence: FR)
  Receive Date: 20211105
  Receipt Date: 20211105
  Transmission Date: 20220303
  Serious: Yes (Other)
  Sender: FDA-Public Use
  Company Number: None

PATIENT
  Age: 58 Year
  Sex: Female

DRUGS (5)
  1. AMOXICILLIN [Suspect]
     Active Substance: AMOXICILLIN
     Indication: Dental implantation
     Dosage: 3 G, QD (1 G X3/JOUR)
     Route: 048
     Dates: start: 20210909, end: 20210919
  2. AMOXICILLIN [Suspect]
     Active Substance: AMOXICILLIN
     Dosage: UNK
  3. PREDNISOLONE [Suspect]
     Active Substance: PREDNISOLONE
     Indication: Dental implantation
     Dosage: 80 MG, QD
     Route: 048
     Dates: start: 20210909, end: 20210913
  4. MINOXIDIL [Concomitant]
     Active Substance: MINOXIDIL
     Indication: Alopecia
     Dosage: 7 DF, QD (7 PULVERISATIONS PAR JOUR)
     Route: 065
     Dates: start: 20210129
  5. DOLIPRANE [Concomitant]
     Active Substance: ACETAMINOPHEN
     Indication: Dental implantation
     Dosage: 1000 MG, QD
     Route: 048
     Dates: start: 20210909, end: 20210910

REACTIONS (2)
  - Mixed liver injury [Recovering/Resolving]
  - Jaundice [Recovering/Resolving]

NARRATIVE: CASE EVENT DATE: 20210901
